FAERS Safety Report 19237482 (Version 1)
Quarter: 2021Q2

REPORT INFORMATION
  Report Type: Spontaneous
  Country: PR (occurrence: PR)
  Receive Date: 20210510
  Receipt Date: 20210510
  Transmission Date: 20210717
  Serious: Yes (Other)
  Sender: FDA-Public Use
  Company Number: None

PATIENT
  Age: 47 Year
  Sex: Female

DRUGS (1)
  1. KEVZARA [Suspect]
     Active Substance: SARILUMAB
     Indication: RHEUMATOID ARTHRITIS
     Dosage: ?          OTHER FREQUENCY:ALTERNATE WEEKS;?
     Route: 058
     Dates: start: 20210308, end: 20210510

REACTIONS (4)
  - Rash [None]
  - Pruritus [None]
  - Pharyngeal swelling [None]
  - Injection site erythema [None]

NARRATIVE: CASE EVENT DATE: 20210510
